FAERS Safety Report 17224883 (Version 5)
Quarter: 2021Q4

REPORT INFORMATION
  Report Type: Report from Study
  Country: GB (occurrence: GB)
  Receive Date: 20200102
  Receipt Date: 20211217
  Transmission Date: 20220303
  Serious: Yes (Hospitalization, Other)
  Sender: FDA-Public Use
  Company Number: GB-002147023-PHHO2017GB010244

PATIENT
  Age: 1 Year
  Sex: Female
  Weight: 7.3 kg

DRUGS (1)
  1. RANIBIZUMAB [Suspect]
     Active Substance: RANIBIZUMAB
     Indication: Retinopathy of prematurity
     Dosage: 0.2 MG (EACH EYE)
     Route: 050
     Dates: start: 20160225, end: 20160225

REACTIONS (6)
  - Pulmonary hypertension [Recovering/Resolving]
  - Lower respiratory tract infection [Recovered/Resolved]
  - Bronchiolitis [Recovered/Resolved with Sequelae]
  - Upper respiratory tract infection [Recovered/Resolved]
  - Lower respiratory tract infection [Recovered/Resolved]
  - Respiratory syncytial virus bronchiolitis [Recovered/Resolved]

NARRATIVE: CASE EVENT DATE: 20170318
